FAERS Safety Report 17926247 (Version 1)
Quarter: 2020Q2

REPORT INFORMATION
  Report Type: Spontaneous
  Country: CN (occurrence: CN)
  Receive Date: 20200622
  Receipt Date: 20200622
  Transmission Date: 20200714
  Serious: Yes (Other)
  Sender: FDA-Public Use
  Company Number: CN-009507513-2006CHN005585

PATIENT
  Age: 48 Year
  Sex: Female

DRUGS (4)
  1. TEMOZOLOMIDE. [Suspect]
     Active Substance: TEMOZOLOMIDE
     Dosage: MAINTAINENCE THERAPY: 220 MG (INTRAVENOUS 200 MG + ORAL 20 MG)
     Route: 042
     Dates: start: 20191224
  2. TEMOZOLOMIDE. [Suspect]
     Active Substance: TEMOZOLOMIDE
     Indication: GLIOMA
     Dosage: 100 MILLIGRAM, QD; (75 MG/M 2) CHEMOTHERAPY
     Dates: start: 20191024, end: 20191204
  3. TEMOZOLOMIDE. [Suspect]
     Active Substance: TEMOZOLOMIDE
     Dosage: SECOND TO FOURTH CYCLES OF CHEMOTHERAPY ARE (200 MG/M2, 28 DAYS FOR ONE CYCLE): TEMOZOLOMIDE 300 MG
     Route: 042
     Dates: end: 20200407
  4. TEMOZOLOMIDE. [Suspect]
     Active Substance: TEMOZOLOMIDE
     Indication: GLIOMA
     Dosage: MAINTAINENCE TREATMENT: 220 MG (INTRAVENOUS 200 MG + ORAL 20 MG)
     Route: 048
     Dates: start: 20191224

REACTIONS (2)
  - Petit mal epilepsy [Unknown]
  - Vomiting [Unknown]

NARRATIVE: CASE EVENT DATE: 2019
